FAERS Safety Report 12322716 (Version 1)
Quarter: 2016Q2

REPORT INFORMATION
  Report Type: Spontaneous
  Country: US (occurrence: None)
  Receive Date: 20160429
  Receipt Date: 20160429
  Transmission Date: 20160815
  Serious: Yes (Hospitalization)
  Sender: FDA-Public Use
  Company Number: None

PATIENT
  Age: 52 Year
  Sex: Female
  Weight: 76.4 kg

DRUGS (2)
  1. CYCLOPHOSPHAMIDE. [Suspect]
     Active Substance: CYCLOPHOSPHAMIDE
     Dates: end: 20160415
  2. DOXORUBICIN HYDROCHLORIDE. [Concomitant]
     Active Substance: DOXORUBICIN HYDROCHLORIDE
     Dates: end: 20160415

REACTIONS (13)
  - Blood potassium decreased [None]
  - Neutrophil count decreased [None]
  - Dehydration [None]
  - Tongue ulceration [None]
  - Oropharyngeal pain [None]
  - Dysphagia [None]
  - Nausea [None]
  - Abdominal pain [None]
  - Decreased appetite [None]
  - Thrombocytopenia [None]
  - Pyrexia [None]
  - Hypophagia [None]
  - Adult failure to thrive [None]

NARRATIVE: CASE EVENT DATE: 20160420
